FAERS Safety Report 25445950 (Version 1)
Quarter: 2025Q2

REPORT INFORMATION
  Report Type: Spontaneous
  Country: IT (occurrence: IT)
  Receive Date: 20250617
  Receipt Date: 20250617
  Transmission Date: 20250716
  Serious: Yes (Other)
  Sender: SANOFI AVENTIS
  Company Number: IT-SANOFI-02549988

PATIENT
  Sex: Female

DRUGS (1)
  1. LIXISENATIDE [Suspect]
     Active Substance: LIXISENATIDE
     Indication: Parkinson^s disease

REACTIONS (4)
  - Parkinson^s disease [Unknown]
  - Rebound effect [Unknown]
  - Drug effective for unapproved indication [Unknown]
  - Off label use [Unknown]
